FAERS Safety Report 16907542 (Version 1)
Quarter: 2019Q4

REPORT INFORMATION
  Report Type: Spontaneous
  Country: FR (occurrence: FR)
  Receive Date: 20191011
  Receipt Date: 20191011
  Transmission Date: 20200122
  Serious: Yes (Death)
  Sender: FDA-Public Use
  Company Number: FR-ACCORD-156999

PATIENT
  Age: 69 Year
  Sex: Female
  Weight: 103 kg

DRUGS (17)
  1. ORENCIA [Suspect]
     Active Substance: ABATACEPT
     Indication: RHEUMATOID ARTHRITIS
     Route: 041
     Dates: start: 2014, end: 201606
  2. HUMIRA [Suspect]
     Active Substance: ADALIMUMAB
     Indication: RHEUMATOID ARTHRITIS
     Route: 041
     Dates: start: 2013, end: 2014
  3. PRIMPERAN [Concomitant]
     Active Substance: METOCLOPRAMIDE HYDROCHLORIDE
     Dosage: 10 MG, SCORED TABLET
  4. ZYMAD [Concomitant]
     Active Substance: CHOLECALCIFEROL
     Dosage: 80 000 I.U, ORAL SOLUTION IN AMPOULE
  5. LEVOTHYROX [Concomitant]
     Active Substance: LEVOTHYROXINE
     Dosage: EVERY WEDNESDAY, SUNDAY 125 UG, SCORED TABLET
     Route: 048
  6. ZAMUDOL [Concomitant]
     Active Substance: TRAMADOL HYDROCHLORIDE
     Dosage: WITH CONTRAMAL 50 MG 2 / DAY IF PAIN
  7. GLICLAZIDE MYLAN [Concomitant]
     Active Substance: GLICLAZIDE
     Dosage: 30 MG
  8. CRESTOR [Concomitant]
     Active Substance: ROSUVASTATIN CALCIUM
     Route: 048
  9. ARAVA [Suspect]
     Active Substance: LEFLUNOMIDE
     Indication: RHEUMATOID ARTHRITIS
     Route: 048
     Dates: start: 2009, end: 2013
  10. ALPRAZOLAM MYLAN [Concomitant]
     Active Substance: ALPRAZOLAM
     Dosage: IF REQUIRED,  0.50 MG, SCORED TABLET
  11. OMEPRAZOLE ARROW [Concomitant]
     Route: 048
  12. CONTRAMAL [Concomitant]
     Active Substance: TRAMADOL HYDROCHLORIDE
     Dosage: 50 MG
  13. DOLIPRANE [Concomitant]
     Active Substance: ACETAMINOPHEN
     Dosage: IF REQUIRED, 1000 MG
     Route: 048
  14. METHOTREXATE. [Suspect]
     Active Substance: METHOTREXATE
     Indication: RHEUMATOID ARTHRITIS
     Route: 048
  15. TOCILIZUMAB. [Suspect]
     Active Substance: TOCILIZUMAB
     Indication: RHEUMATOID ARTHRITIS
     Route: 041
     Dates: start: 2017
  16. STILNOX [Concomitant]
     Active Substance: ZOLPIDEM TARTRATE
  17. LEVOTHYROX [Concomitant]
     Active Substance: LEVOTHYROXINE
     Dosage: EVERY MONDAYS, TUESDAYS, THURSDAYS, FRIDAYS, SATURDAYS, 100 UG, SCORED TABLET
     Route: 048

REACTIONS (1)
  - Malignant melanoma [Fatal]

NARRATIVE: CASE EVENT DATE: 20190822
